FAERS Safety Report 9495364 (Version 1)
Quarter: 2013Q3

REPORT INFORMATION
  Report Type: Spontaneous
  Country: GB (occurrence: GB)
  Receive Date: 20130903
  Receipt Date: 20130903
  Transmission Date: 20140515
  Serious: Yes (Disabling)
  Sender: FDA-Public Use
  Company Number: GB-GLAXOSMITHKLINE-B0918517A

PATIENT
  Age: 49 Year
  Sex: Male

DRUGS (5)
  1. TROBALT [Suspect]
     Indication: EPILEPSY
     Dosage: 900MG PER DAY
     Route: 048
     Dates: start: 201204, end: 201307
  2. LAMICTAL [Concomitant]
     Indication: EPILEPSY
     Route: 048
  3. EPILIM [Concomitant]
     Indication: EPILEPSY
     Dosage: 2G PER DAY
     Route: 048
  4. MIDAZOLAM [Concomitant]
     Indication: EPILEPSY
     Route: 048
  5. DIAZEPAM [Concomitant]
     Indication: EPILEPSY
     Dosage: 5MG PER DAY
     Route: 048

REACTIONS (4)
  - Rash [Recovering/Resolving]
  - Aphasia [Recovering/Resolving]
  - Slow speech [Recovering/Resolving]
  - Sweat discolouration [Recovering/Resolving]
